FAERS Safety Report 17853965 (Version 2)
Quarter: 2020Q2

REPORT INFORMATION
  Report Type: Spontaneous
  Country: GB (occurrence: GB)
  Receive Date: 20200603
  Receipt Date: 20200614
  Transmission Date: 20200714
  Serious: Yes (Death, Life-Threatening, Hospitalization, Disabling, Other)
  Sender: FDA-Public Use
  Company Number: GB-BRISTOL-MYERS SQUIBB COMPANY-BMS-2020-040928

PATIENT
  Age: 80 Year
  Sex: Female
  Weight: 58.7 kg

DRUGS (14)
  1. ERYTHROMYCIN. [Concomitant]
     Active Substance: ERYTHROMYCIN
     Indication: PRODUCT USED FOR UNKNOWN INDICATION
     Dosage: 500 MG, DAILY (PROPHYLAXIS POST SPLENECTOMY) ? PRESCRIBED PRIOR TO ADMISSION
     Route: 065
     Dates: start: 20200327
  2. COLCHICINE. [Concomitant]
     Active Substance: COLCHICINE
     Indication: PRODUCT USED FOR UNKNOWN INDICATION
     Dosage: UNK
     Route: 065
     Dates: start: 20200317, end: 20200320
  3. MAGNESIUM [Concomitant]
     Active Substance: MAGNESIUM
     Indication: PRODUCT USED FOR UNKNOWN INDICATION
     Dosage: UNK
     Route: 065
  4. ATORVASTATIN [Concomitant]
     Active Substance: ATORVASTATIN
     Indication: PRODUCT USED FOR UNKNOWN INDICATION
     Dosage: UNK
     Route: 065
  5. METFORMIN [Concomitant]
     Active Substance: METFORMIN HYDROCHLORIDE
     Indication: PRODUCT USED FOR UNKNOWN INDICATION
     Dosage: UNK
     Route: 065
  6. SODIUM VALPROATE [Concomitant]
     Active Substance: VALPROATE SODIUM
     Indication: SEIZURE
     Dosage: 400 MG DAILY, ON THIS MEDICATION PRIOR TO ADMISSION
     Route: 065
     Dates: start: 20200329
  7. QUININE SULFATE. [Concomitant]
     Active Substance: QUININE SULFATE
     Indication: MUSCLE SPASMS
     Dosage: 300 MG DAILY (AT NIGHT ? PRESCRIBED THIS MEDICATION PRIOR TO ADMISSION)
     Route: 065
     Dates: start: 20200329
  8. LANSOPRAZOLE. [Concomitant]
     Active Substance: LANSOPRAZOLE
     Indication: PRODUCT USED FOR UNKNOWN INDICATION
     Dosage: 15 MG DAILY IN THE MORNING (PPI GASTRO PROTECTION) - PRESCRIBED PRIOR TO ADMISSION
     Route: 065
     Dates: start: 20200329
  9. WARFARIN SODIUM. [Suspect]
     Active Substance: WARFARIN SODIUM
     Indication: ATRIAL FIBRILLATION
     Dosage: 3MG DAILY EXCEPT 2MG ON SATURDAY AND SUNDAY
     Route: 048
     Dates: start: 20130104, end: 20200319
  10. MEMANTINE. [Concomitant]
     Active Substance: MEMANTINE
     Indication: DEMENTIA
     Dosage: 15 MG DAILY IN THE MORNING - ON THIS PRIOR TO ADMISSION
     Route: 065
     Dates: start: 20200329
  11. CANDESARTAN. [Concomitant]
     Active Substance: CANDESARTAN
     Indication: HYPERTENSION
     Dosage: 8 MG DAILY, IN THE MORNING - PRESCRIBED THIS MEDICATION PRIOR TO ADMISSION STOPPED ON THE 29-MAR-202
     Route: 065
  12. NIFEDIPINE. [Concomitant]
     Active Substance: NIFEDIPINE
     Indication: HYPERTENSION
     Dosage: 10 MG DAILY, IN THE MORNING-ON THIS PRIOR TO ADMISSION
     Route: 065
     Dates: start: 20200329
  13. NYSTATIN. [Concomitant]
     Active Substance: NYSTATIN
     Indication: ORAL CANDIDIASIS
     Dosage: 4 ML DAILY (100,000 UNITS/1ML)
     Route: 065
     Dates: start: 20200318, end: 20200322
  14. SANDO K [POTASSIUM CHLORIDE] [Concomitant]
     Indication: BLOOD POTASSIUM DECREASED
     Dosage: UNK
     Route: 065

REACTIONS (2)
  - COVID-19 pneumonia [Fatal]
  - International normalised ratio increased [Recovered/Resolved]

NARRATIVE: CASE EVENT DATE: 20200320
